FAERS Safety Report 19880941 (Version 1)
Quarter: 2021Q3

REPORT INFORMATION
  Report Type: Spontaneous
  Country: BR (occurrence: BR)
  Receive Date: 20210924
  Receipt Date: 20210924
  Transmission Date: 20211014
  Serious: No
  Sender: FDA-Public Use
  Company Number: BR-JNJFOC-20210809401

PATIENT
  Age: 5 Decade
  Sex: Female
  Weight: 56 kg

DRUGS (1)
  1. SIMPONI [Suspect]
     Active Substance: GOLIMUMAB
     Indication: RHEUMATOID ARTHRITIS
     Dosage: STRENGTH: 50.00 MG / 0.50 ML
     Route: 058
     Dates: start: 2020

REACTIONS (4)
  - Accidental exposure to product [Unknown]
  - Needle issue [Unknown]
  - Device issue [Unknown]
  - Underdose [Unknown]
